FAERS Safety Report 6255677-5 (Version None)
Quarter: 2009Q3

REPORT INFORMATION
  Report Type: 
  Country: None (occurrence: None)
  Receive Date: 20090701
  Receipt Date: 20090601
  Transmission Date: 20100115
  Serious: Yes (Hospitalization)
  Sender: FDA-Public Use
  Company Number: 1-18935386

PATIENT
  Age: 57 Year
  Sex: Female

DRUGS (3)
  1. BACTRIM [Suspect]
     Indication: APPLICATION SITE INFECTION
     Dosage: ORAL
     Route: 048
     Dates: start: 20090112, end: 20090121
  2. ALDARA [Suspect]
     Indication: ACTINIC KERATOSIS
     Dosage: 3 TIMES PER WEEK, TOPICAL
     Route: 061
     Dates: start: 20090101, end: 20090121
  3. PREMPRO (CONJUGATED ESTROGENS/MEDROPROGESTERONE ACETATE) [Concomitant]

REACTIONS (8)
  - APPLICATION SITE DISCHARGE [None]
  - APPLICATION SITE DISCOLOURATION [None]
  - APPLICATION SITE INFECTION [None]
  - BREAST INFECTION [None]
  - CONDITION AGGRAVATED [None]
  - PRURITUS [None]
  - SCAB [None]
  - URTICARIA [None]
